FAERS Safety Report 9023501 (Version 7)
Quarter: 2013Q3

REPORT INFORMATION
  Report Type: Report from Study
  Country: IL (occurrence: IL)
  Receive Date: 20130121
  Receipt Date: 20130910
  Transmission Date: 20140515
  Serious: Yes (Hospitalization)
  Sender: FDA-Public Use
  Company Number: IL-MERCK-1301ISR006616

PATIENT
  Age: 59 Year
  Sex: Male
  Weight: 67 kg

DRUGS (9)
  1. PRELADENANT [Suspect]
     Indication: PARKINSON^S DISEASE
     Dosage: 5 MG, BID
     Route: 048
     Dates: start: 20120618, end: 20130131
  2. SINEMET CR [Suspect]
     Indication: PARKINSON^S DISEASE
     Dosage: 1 DF, BID
     Route: 048
     Dates: start: 20121226, end: 20130106
  3. STALEVO [Suspect]
     Indication: PARKINSON^S DISEASE
     Dosage: 1 DF, 5 TIMES A DAY
     Route: 048
     Dates: start: 20121226, end: 20130106
  4. STALEVO [Suspect]
     Dosage: 100 MG, QID
  5. DOPICAR [Suspect]
     Indication: PARKINSON^S DISEASE
     Dosage: 0.5 DF, QID
     Route: 048
     Dates: start: 20101121, end: 20121225
  6. CIPRALEX [Concomitant]
     Indication: DEPRESSION
     Dosage: 10 MG, BID
     Route: 048
     Dates: start: 20120919
  7. OMNIC [Concomitant]
     Indication: BENIGN PROSTATIC HYPERPLASIA
     Dosage: 0.4 MG, QD
     Route: 048
     Dates: start: 2005
  8. HEMP [Concomitant]
     Indication: PARKINSON^S DISEASE
     Dosage: 1 G, PRN
     Route: 048
     Dates: start: 201112
  9. TRAMADOL HYDROCHLORIDE [Concomitant]
     Indication: MUSCULOSKELETAL PAIN
     Dosage: 50 MG, PRN
     Route: 048
     Dates: start: 20120607

REACTIONS (2)
  - Parkinson^s disease [Recovering/Resolving]
  - Intentional drug misuse [Not Recovered/Not Resolved]
